FAERS Safety Report 24596626 (Version 1)
Quarter: 2024Q4

REPORT INFORMATION
  Report Type: Spontaneous
  Country: US (occurrence: US)
  Receive Date: 20241110
  Receipt Date: 20241110
  Transmission Date: 20250114
  Serious: No
  Sender: SANOFI AVENTIS
  Company Number: US-SA-2024SA305440

PATIENT
  Sex: Female

DRUGS (27)
  1. DUPIXENT [Suspect]
     Active Substance: DUPILUMAB
     Indication: Dermatitis atopic
     Dosage: 300 MG QOW
     Route: 058
     Dates: start: 20210702, end: 202405
  2. ACAMPROSATE CALCIUM [Concomitant]
     Active Substance: ACAMPROSATE CALCIUM
  3. ALBUTEROL [Concomitant]
     Active Substance: ALBUTEROL
  4. ATOMOXETINE [Concomitant]
     Active Substance: ATOMOXETINE HYDROCHLORIDE
  5. BUPROPION HYDROCHLORIDE [Concomitant]
     Active Substance: BUPROPION HYDROCHLORIDE
  6. CHLORDIAZEPOX HYDROCHLORIDE [Concomitant]
  7. CLONIDINE [Concomitant]
     Active Substance: CLONIDINE
  8. FLUOXETINE [Concomitant]
     Active Substance: FLUOXETINE HYDROCHLORIDE
  9. FLUOXETINE [Concomitant]
     Active Substance: FLUOXETINE HYDROCHLORIDE
  10. HYDROCHLOROTHIAZIDE [Concomitant]
     Active Substance: HYDROCHLOROTHIAZIDE
  11. HYDROXYZINE HYDROCHLORIDE [Concomitant]
     Active Substance: HYDROXYZINE HYDROCHLORIDE
  12. IVERMECTIN [Concomitant]
     Active Substance: IVERMECTIN
  13. LAMOTRIGINE [Concomitant]
     Active Substance: LAMOTRIGINE
  14. LOSARTAN [Concomitant]
     Active Substance: LOSARTAN
  15. METOPROLOL [Concomitant]
     Active Substance: METOPROLOL
  16. NALTREXONE [Concomitant]
     Active Substance: NALTREXONE
  17. ONDANSETRON [Concomitant]
     Active Substance: ONDANSETRON
  18. PIMECROLIMUS [Concomitant]
     Active Substance: PIMECROLIMUS
  19. PREDNISONE [Concomitant]
     Active Substance: PREDNISONE
  20. PROMETHAZINE [Concomitant]
     Active Substance: PROMETHAZINE HYDROCHLORIDE
  21. ROSUVASTATIN [Concomitant]
     Active Substance: ROSUVASTATIN
  22. SCOPOLAMINE [Concomitant]
     Active Substance: SCOPOLAMINE
  23. SPIRONOLACTONE [Concomitant]
     Active Substance: SPIRONOLACTONE
  24. SYMBICORT [Concomitant]
     Active Substance: BUDESONIDE\FORMOTEROL FUMARATE DIHYDRATE
  25. TRANEXAMIC ACID [Concomitant]
     Active Substance: TRANEXAMIC ACID
  26. TRAZODONE HCL [Concomitant]
     Active Substance: TRAZODONE HYDROCHLORIDE
  27. VALACYCLOVIR [Concomitant]
     Active Substance: VALACYCLOVIR HYDROCHLORIDE

REACTIONS (2)
  - Sleep disorder due to a general medical condition [Not Recovered/Not Resolved]
  - Rash [Not Recovered/Not Resolved]

NARRATIVE: CASE EVENT DATE: 20240101
